FAERS Safety Report 13363409 (Version 5)
Quarter: 2018Q1

REPORT INFORMATION
  Report Type: Spontaneous
  Country: IT (occurrence: IT)
  Receive Date: 20170323
  Receipt Date: 20180222
  Transmission Date: 20180508
  Serious: Yes (Hospitalization)
  Sender: FDA-Public Use
  Company Number: IT-PFIZER INC-2017121923

PATIENT
  Age: 60 Year
  Sex: Female

DRUGS (4)
  1. ZOLOFT [Suspect]
     Active Substance: SERTRALINE HYDROCHLORIDE
     Dosage: 15 DF, TOTAL
     Route: 048
  2. GABAPENTIN. [Suspect]
     Active Substance: GABAPENTIN
     Dosage: 1000 MG, TOTAL
     Route: 048
  3. XANAX [Suspect]
     Active Substance: ALPRAZOLAM
     Dosage: 16 DF, TOTAL
     Route: 048
  4. ZOLPIDEM /00914902/ [Suspect]
     Active Substance: ZOLPIDEM\ZOLPIDEM TARTRATE
     Dosage: 20 DF, TOTAL
     Route: 048

REACTIONS (6)
  - Loss of consciousness [Unknown]
  - Suicide attempt [Unknown]
  - Overdose [Unknown]
  - Drug abuse [Unknown]
  - Mydriasis [Unknown]
  - Photophobia [Unknown]

NARRATIVE: CASE EVENT DATE: 20161201
